FAERS Safety Report 21654455 (Version 5)
Quarter: 2024Q3

REPORT INFORMATION
  Report Type: Spontaneous
  Country: US (occurrence: US)
  Receive Date: 20221129
  Receipt Date: 20240723
  Transmission Date: 20241017
  Serious: Yes (Other)
  Sender: SANOFI AVENTIS
  Company Number: US-SA-SAC20221128000166

PATIENT
  Age: 29 Year
  Sex: Male

DRUGS (8)
  1. ELOCTATE [Suspect]
     Active Substance: EFMOROCTOCOG ALFA
     Indication: Factor VIII deficiency
     Dosage: 4150 U (3735-4565), Q4D FOR PROPHYLAXIS
     Route: 042
     Dates: start: 201208
  2. ELOCTATE [Suspect]
     Active Substance: EFMOROCTOCOG ALFA
     Indication: Factor VIII deficiency
     Dosage: 4150 U (3735-4565), Q4D FOR PROPHYLAXIS
     Route: 042
     Dates: start: 201208
  3. ELOCTATE [Suspect]
     Active Substance: EFMOROCTOCOG ALFA
     Dosage: 4150 U (3735-4565) , EVERY 12-24 HRS, PRN FOR ACTIVE MAJOR BLEED
     Route: 042
     Dates: start: 201208
  4. ELOCTATE [Suspect]
     Active Substance: EFMOROCTOCOG ALFA
     Dosage: 4150 U (3735-4565) , EVERY 12-24 HRS, PRN FOR ACTIVE MAJOR BLEED
     Route: 042
     Dates: start: 201208
  5. ELOCTATE [Suspect]
     Active Substance: EFMOROCTOCOG ALFA
     Dosage: 2400 U (2160-2640) FOR MINOR/MODERATE JOINT BLEEDS, EVERY 24-48 HOURS, PRN
     Route: 042
  6. ELOCTATE [Suspect]
     Active Substance: EFMOROCTOCOG ALFA
     Dosage: 2400 U (2160-2640) FOR MINOR/MODERATE JOINT BLEEDS, EVERY 24-48 HOURS, PRN
     Route: 042
  7. ELOCTATE [Suspect]
     Active Substance: EFMOROCTOCOG ALFA
     Dosage: 4150 U (3735-4565), Q4D
     Route: 042
     Dates: start: 202306
  8. ELOCTATE [Suspect]
     Active Substance: EFMOROCTOCOG ALFA
     Dosage: 4150 U (3735-4565), Q4D
     Route: 042
     Dates: start: 202306

REACTIONS (8)
  - Haemorrhage [Not Recovered/Not Resolved]
  - Spontaneous haemorrhage [Recovered/Resolved]
  - Traumatic haemorrhage [Not Recovered/Not Resolved]
  - Contusion [Unknown]
  - Limb injury [Unknown]
  - Haemorrhage [Unknown]
  - Haemorrhage [Not Recovered/Not Resolved]
  - Joint swelling [Unknown]

NARRATIVE: CASE EVENT DATE: 20220101
